FAERS Safety Report 17163138 (Version 1)
Quarter: 2019Q4

REPORT INFORMATION
  Report Type: Spontaneous
  Country: US (occurrence: US)
  Receive Date: 20191216
  Receipt Date: 20191216
  Transmission Date: 20200122
  Serious: No
  Sender: FDA-Public Use
  Company Number: None

PATIENT
  Age: 45 Year
  Sex: Female
  Weight: 68.95 kg

DRUGS (2)
  1. XOLAIR [Suspect]
     Active Substance: OMALIZUMAB
     Indication: ASTHMA
     Dates: start: 20191113
  2. XOLAIR [Concomitant]
     Active Substance: OMALIZUMAB
     Dates: start: 20191113, end: 20191216

REACTIONS (3)
  - Cough [None]
  - Throat clearing [None]
  - Post procedural complication [None]

NARRATIVE: CASE EVENT DATE: 20191216
